FAERS Safety Report 9803490 (Version 1)
Quarter: 2014Q1

REPORT INFORMATION
  Report Type: Spontaneous
  Country: TR (occurrence: None)
  Receive Date: 20140103
  Receipt Date: 20140103
  Transmission Date: 20141002
  Serious: Yes (Other)
  Sender: FDA-Public Use
  Company Number: 2013P1022182

PATIENT
  Age: 8 Year
  Sex: Male

DRUGS (3)
  1. METHYLPREDNISOLONE [Suspect]
     Indication: HAEMOLYSIS
     Route: 042
  2. FOLIC ACID [Concomitant]
  3. PREDNISOLONE [Concomitant]

REACTIONS (3)
  - Posterior reversible encephalopathy syndrome [None]
  - Convulsion [None]
  - Blood pressure increased [None]
